FAERS Safety Report 6509381-6 (Version None)
Quarter: 2009Q4

REPORT INFORMATION
  Report Type: 
  Country: None (occurrence: None)
  Receive Date: 20091218
  Receipt Date: 20091218
  Transmission Date: 20100525
  Serious: No
  Sender: FDA-Public Use
  Company Number: None

PATIENT
  Age: 52 Month
  Sex: Male
  Weight: 17.2911 kg

DRUGS (1)
  1. VYVANSE [Suspect]
     Indication: ATTENTION DEFICIT/HYPERACTIVITY DISORDER
     Dosage: 20 MG ORAL
     Route: 048
     Dates: start: 20091214

REACTIONS (3)
  - IRRITABILITY [None]
  - PRURITUS [None]
  - RASH MACULAR [None]
